FAERS Safety Report 18563576 (Version 5)
Quarter: 2021Q1

REPORT INFORMATION
  Report Type: Spontaneous
  Country: JP (occurrence: JP)
  Receive Date: 20201201
  Receipt Date: 20210201
  Transmission Date: 20210419
  Serious: Yes (Other)
  Sender: FDA-Public Use
  Company Number: NVSJ2020JP011305

PATIENT
  Age: 68 Year
  Sex: Male
  Weight: 55.9 kg

DRUGS (20)
  1. EYLEA [Suspect]
     Active Substance: AFLIBERCEPT
     Dosage: UNKNOWN
     Route: 065
     Dates: start: 20190315, end: 20190315
  2. EYLEA [Suspect]
     Active Substance: AFLIBERCEPT
     Dosage: UNKNOWN
     Route: 065
     Dates: start: 20190705, end: 20190705
  3. EYLEA [Suspect]
     Active Substance: AFLIBERCEPT
     Dosage: UNKNOWN
     Route: 065
     Dates: start: 20190903, end: 20190903
  4. EYLEA [Suspect]
     Active Substance: AFLIBERCEPT
     Dosage: UNKNOWN
     Route: 065
     Dates: start: 20200414, end: 20200414
  5. EYLEA [Suspect]
     Active Substance: AFLIBERCEPT
     Indication: POLYPOIDAL CHOROIDAL VASCULOPATHY
     Dosage: UNKNOWN
     Route: 065
     Dates: start: 20171219, end: 20171219
  6. EYLEA [Suspect]
     Active Substance: AFLIBERCEPT
     Dosage: UNKNOWN
     Route: 065
     Dates: start: 20190118, end: 20190118
  7. VEGAMOX [Concomitant]
     Active Substance: MOXIFLOXACIN HYDROCHLORIDE
     Indication: PRODUCT USED FOR UNKNOWN INDICATION
     Dosage: UNK
     Route: 047
  8. BEOVU [Suspect]
     Active Substance: BROLUCIZUMAB-DBLL
     Dosage: 6 MG
     Route: 031
     Dates: start: 20201030, end: 20201030
  9. EYLEA [Suspect]
     Active Substance: AFLIBERCEPT
     Dosage: UNKNOWN
     Route: 065
     Dates: start: 20180123, end: 20180123
  10. EYLEA [Suspect]
     Active Substance: AFLIBERCEPT
     Dosage: UNKNOWN
     Route: 065
     Dates: start: 20180227, end: 20180227
  11. EYLEA [Suspect]
     Active Substance: AFLIBERCEPT
     Dosage: UNKNOWN
     Route: 065
     Dates: start: 20180831, end: 20180831
  12. EYLEA [Suspect]
     Active Substance: AFLIBERCEPT
     Dosage: UNKNOWN
     Route: 065
     Dates: start: 20181005, end: 20181005
  13. EYLEA [Suspect]
     Active Substance: AFLIBERCEPT
     Dosage: UNKNOWN
     Route: 065
     Dates: start: 20200609, end: 20200609
  14. EYLEA [Suspect]
     Active Substance: AFLIBERCEPT
     Dosage: UNKNOWN
     Route: 065
     Dates: start: 20181109, end: 20181109
  15. EYLEA [Suspect]
     Active Substance: AFLIBERCEPT
     Dosage: UNKNOWN
     Route: 065
     Dates: start: 20191029, end: 20191029
  16. EYLEA [Suspect]
     Active Substance: AFLIBERCEPT
     Dosage: UNKNOWN
     Route: 065
     Dates: start: 20200812, end: 20200812
  17. BEOVU [Suspect]
     Active Substance: BROLUCIZUMAB-DBLL
     Indication: NEOVASCULAR AGE-RELATED MACULAR DEGENERATION
     Dosage: 6 MG
     Route: 031
     Dates: start: 20201006, end: 20201006
  18. EYLEA [Suspect]
     Active Substance: AFLIBERCEPT
     Dosage: UNKNOWN
     Route: 065
     Dates: start: 20190510, end: 20190510
  19. EYLEA [Suspect]
     Active Substance: AFLIBERCEPT
     Dosage: UNKNOWN
     Route: 065
     Dates: start: 20191224, end: 20191224
  20. EYLEA [Suspect]
     Active Substance: AFLIBERCEPT
     Dosage: UNKNOWN
     Route: 065
     Dates: start: 20200218, end: 20200218

REACTIONS (9)
  - Mycobacterium tuberculosis complex test positive [Unknown]
  - Visual acuity reduced transiently [Recovered/Resolved]
  - Keratic precipitates [Unknown]
  - Conjunctival hyperaemia [Recovered/Resolved]
  - Retinal vasculitis [Recovered/Resolved]
  - Retinal perivascular sheathing [Unknown]
  - Vitreous floaters [Unknown]
  - Anterior chamber cell [Unknown]
  - Vitritis [Recovered/Resolved]

NARRATIVE: CASE EVENT DATE: 20201013
